FAERS Safety Report 21069802 (Version 1)
Quarter: 2022Q3

REPORT INFORMATION
  Report Type: Spontaneous
  Country: US (occurrence: US)
  Receive Date: 20220712
  Receipt Date: 20220712
  Transmission Date: 20221026
  Serious: No
  Sender: FDA-Public Use
  Company Number: US-ASTELLAS-2022US021710

PATIENT
  Age: 68 Year
  Sex: Female

DRUGS (1)
  1. MYRBETRIQ [Suspect]
     Active Substance: MIRABEGRON
     Indication: Product used for unknown indication
     Dosage: HALF 50 MG TABLET, ONCE DAILY
     Route: 065
     Dates: start: 20220611, end: 20220611

REACTIONS (2)
  - Wrong technique in product usage process [Unknown]
  - Off label use [Unknown]
